FAERS Safety Report 5403030-6 (Version None)
Quarter: 2007Q3

REPORT INFORMATION
  Report Type: 
  Country: None (occurrence: None)
  Receive Date: 20070713
  Receipt Date: 20070221
  Transmission Date: 20080115
  Serious: Yes (Other)
  Sender: FDA-Public Use
  Company Number: 483527

PATIENT
  Age: 73 Year
  Sex: Female

DRUGS (2)
  1. BONIVA [Suspect]
     Indication: DRUG USE FOR UNKNOWN INDICATION
     Dates: start: 20070120
  2. CRESTOR [Concomitant]

REACTIONS (5)
  - ABNORMAL DREAMS [None]
  - DRY MOUTH [None]
  - EYE HAEMORRHAGE [None]
  - HYPERTENSION [None]
  - VULVOVAGINAL BURNING SENSATION [None]
